FAERS Safety Report 5847640-0 (Version None)
Quarter: 2008Q3

REPORT INFORMATION
  Report Type: 
  Country: None (occurrence: None)
  Receive Date: 20080818
  Receipt Date: 20080811
  Transmission Date: 20090109
  Serious: Yes (Hospitalization, Disabling)
  Sender: FDA-Public Use
  Company Number: US-JNJFOC-20080200927

PATIENT
  Sex: Female
  Weight: 58.51 kg

DRUGS (4)
  1. ORTHO EVRA [Suspect]
     Indication: CONTRACEPTION
     Route: 062
  2. LEVAQUIN [Concomitant]
     Indication: SINUSITIS
  3. DARVOCET [Concomitant]
     Indication: SINUS HEADACHE
  4. ANTIDEPRESSANT [Concomitant]

REACTIONS (2)
  - CEREBROVASCULAR ACCIDENT [None]
  - CONVULSION [None]
